FAERS Safety Report 11341221 (Version 3)
Quarter: 2016Q1

REPORT INFORMATION
  Report Type: Spontaneous
  Country: US (occurrence: US)
  Receive Date: 20150805
  Receipt Date: 20160211
  Transmission Date: 20160525
  Serious: Yes (Other)
  Sender: FDA-Public Use
  Company Number: US-JNJFOC-20150719857

PATIENT
  Sex: Male
  Weight: 72.58 kg

DRUGS (3)
  1. ATENOLOL. [Concomitant]
     Active Substance: ATENOLOL
     Indication: STENT PLACEMENT
     Route: 065
     Dates: start: 1976
  2. CYCLOBENZAPRINE [Concomitant]
     Active Substance: CYCLOBENZAPRINE
     Indication: MUSCLE SPASMS
     Dosage: AS NEEDED
     Route: 065
  3. XARELTO [Suspect]
     Active Substance: RIVAROXABAN
     Indication: PRODUCT USED FOR UNKNOWN INDICATION
     Route: 048
     Dates: start: 201507, end: 2015

REACTIONS (6)
  - Haemorrhage [Unknown]
  - Rectal haemorrhage [Recovered/Resolved]
  - Coagulopathy [Unknown]
  - Asthenia [Unknown]
  - Skin haemorrhage [Recovered/Resolved]
  - Spontaneous haemorrhage [Recovered/Resolved]

NARRATIVE: CASE EVENT DATE: 2015
